FAERS Safety Report 16352466 (Version 1)
Quarter: 2019Q2

REPORT INFORMATION
  Report Type: Spontaneous
  Country: CN (occurrence: CN)
  Receive Date: 20190524
  Receipt Date: 20190524
  Transmission Date: 20190711
  Serious: Yes (Hospitalization, Other)
  Sender: FDA-Public Use
  Company Number: CN-PFIZER INC-2019218893

PATIENT
  Age: 69 Year
  Sex: Male
  Weight: 59 kg

DRUGS (1)
  1. ZYVOX [Suspect]
     Active Substance: LINEZOLID
     Indication: DRUG THERAPY
     Dosage: 600 MG, 2X/DAY
     Route: 041
     Dates: start: 20190506, end: 20190514

REACTIONS (2)
  - Platelet count decreased [Recovering/Resolving]
  - Haemorrhage [Unknown]

NARRATIVE: CASE EVENT DATE: 201905
